FAERS Safety Report 4705833-X (Version None)
Quarter: 2005Q2

REPORT INFORMATION
  Report Type: 
  Country: None (occurrence: None)
  Receive Date: 20050629
  Receipt Date: 20050502
  Transmission Date: 20051028
  Serious: Yes (Hospitalization)
  Sender: FDA-Public Use
  Company Number: 05P-163-0298963-00

PATIENT
  Age: 50 Year
  Sex: Male
  Weight: 58.0604 kg

DRUGS (10)
  1. HUMIRA [Suspect]
     Indication: RHEUMATOID ARTHRITIS
     Dosage: SEE IMAGE
     Route: 058
     Dates: start: 20041001, end: 20050312
  2. HUMIRA [Suspect]
     Indication: RHEUMATOID ARTHRITIS
     Dosage: SEE IMAGE
     Route: 058
     Dates: start: 20050312
  3. CYCLOBENZAPRINE HYDROCHLORIDE [Concomitant]
  4. HYDRALAZINE HCL [Concomitant]
  5. CELECOXIB [Concomitant]
  6. PANTOPRAZOLE [Concomitant]
  7. VICODIN [Concomitant]
  8. CALCIUM GLUCONATE [Concomitant]
  9. MULTI-VITAMINS [Concomitant]
  10. ERGOCALCIFEROL [Concomitant]

REACTIONS (2)
  - INJECTION SITE IRRITATION [None]
  - RHEUMATOID ARTHRITIS [None]
